FAERS Safety Report 12195480 (Version 1)
Quarter: 2016Q1

REPORT INFORMATION
  Report Type: Report from Study
  Country: US (occurrence: US)
  Receive Date: 20160321
  Receipt Date: 20160321
  Transmission Date: 20160526
  Serious: Yes (Hospitalization, Other)
  Sender: FDA-Public Use
  Company Number: US-GILEAD-2016-0203973

PATIENT
  Age: 59 Year
  Sex: Female

DRUGS (4)
  1. AMBRISENTAN [Suspect]
     Active Substance: AMBRISENTAN
     Indication: PRODUCT USED FOR UNKNOWN INDICATION
     Dosage: 10 MG, UNK
     Route: 065
  2. DILTIAZEM [Concomitant]
     Active Substance: DILTIAZEM
  3. ADCIRCA [Concomitant]
     Active Substance: TADALAFIL
  4. OPSUMIT [Concomitant]
     Active Substance: MACITENTAN

REACTIONS (6)
  - Pelvic fracture [Unknown]
  - Blood electrolytes abnormal [Unknown]
  - Fall [Unknown]
  - Asthenia [Unknown]
  - Kidney infection [Unknown]
  - Head injury [Unknown]
